FAERS Safety Report 6607127-4 (Version None)
Quarter: 2010Q1

REPORT INFORMATION
  Report Type: 
  Country: None (occurrence: None)
  Receive Date: 20100212
  Receipt Date: 20091106
  Transmission Date: 20100710
  Serious: Yes (Other)
  Sender: FDA-Public Use
  Company Number: 1000009570

PATIENT
  Age: 36 Year
  Sex: Female
  Weight: 115.2136 kg

DRUGS (7)
  1. SAVELLA [Suspect]
     Indication: ANXIETY
     Dosage: SEE IMAGE
     Route: 048
     Dates: start: 20090715, end: 20090715
  2. SAVELLA [Suspect]
     Indication: DEPRESSION
     Dosage: SEE IMAGE
     Route: 048
     Dates: start: 20090715, end: 20090715
  3. SAVELLA [Suspect]
     Indication: ANXIETY
     Dosage: 200 MG (100 MG,2 IN 1 D),ORAL
     Route: 048
     Dates: start: 20090909, end: 20090918
  4. SAVELLA [Suspect]
     Indication: DEPRESSION
     Dosage: 200 MG (100 MG,2 IN 1 D),ORAL
     Route: 048
     Dates: start: 20090909, end: 20090918
  5. METHADONE HCL [Concomitant]
  6. XANAX [Concomitant]
  7. HYDROCHLOROTHIAZIDE [Concomitant]

REACTIONS (3)
  - MENTAL STATUS CHANGES [None]
  - OFF LABEL USE [None]
  - SUICIDAL IDEATION [None]
